FAERS Safety Report 14303003 (Version 5)
Quarter: 2018Q2

REPORT INFORMATION
  Report Type: Report from Study
  Country: ES (occurrence: ES)
  Receive Date: 20171219
  Receipt Date: 20180420
  Transmission Date: 20180711
  Serious: No
  Sender: FDA-Public Use
  Company Number: ES-SA-2017SA237180

PATIENT
  Age: 55 Year
  Sex: Male
  Weight: 102 kg

DRUGS (4)
  1. SAR231893 [Suspect]
     Active Substance: DUPILUMAB
     Indication: NASAL POLYPS
     Route: 058
     Dates: start: 20170323
  2. NASONEX [Suspect]
     Active Substance: MOMETASONE FUROATE
     Indication: NASAL POLYPS
     Route: 045
     Dates: start: 20170223
  3. FLUTICASONE FUROATE [Concomitant]
     Active Substance: FLUTICASONE FUROATE
     Route: 007
     Dates: start: 20161215
  4. VILANTEROL [Concomitant]
     Active Substance: VILANTEROL TRIFENATATE
     Route: 007
     Dates: start: 20161215

REACTIONS (1)
  - Eosinophilia [Not Recovered/Not Resolved]

NARRATIVE: CASE EVENT DATE: 20170717
